FAERS Safety Report 16757551 (Version 1)
Quarter: 2019Q3

REPORT INFORMATION
  Report Type: Other
  Country: CA (occurrence: CA)
  Receive Date: 20190830
  Receipt Date: 20190830
  Transmission Date: 20191005
  Serious: Yes (Hospitalization, Disabling)
  Sender: FDA-Public Use
  Company Number: CA-COLGATE PALMOLIVE COMPANY-20190802154

PATIENT
  Sex: Female

DRUGS (1)
  1. CHLORHEXIDINE UNSPECIFIED [Suspect]
     Active Substance: CHLORHEXIDINE
     Dosage: 1 DOSAGE UNITS

REACTIONS (3)
  - Aptyalism [Unknown]
  - Gingivitis [Unknown]
  - Ageusia [Unknown]
